FAERS Safety Report 9434287 (Version 2)
Quarter: 2013Q3

REPORT INFORMATION
  Report Type: Spontaneous
  Country: CH (occurrence: CH)
  Receive Date: 20130801
  Receipt Date: 20130912
  Transmission Date: 20140515
  Serious: Yes (Other)
  Sender: FDA-Public Use
  Company Number: CH-ROCHE-1254846

PATIENT
  Sex: Female

DRUGS (1)
  1. AVASTIN [Suspect]
     Indication: ANAPLASTIC OLIGODENDROGLIOMA
     Route: 042
     Dates: start: 201304

REACTIONS (1)
  - Oligodendroglioma [Unknown]
